FAERS Safety Report 23958641 (Version 1)
Quarter: 2024Q2

REPORT INFORMATION
  Report Type: Spontaneous
  Country: US (occurrence: US)
  Receive Date: 20240610
  Receipt Date: 20240610
  Transmission Date: 20240716
  Serious: Yes (Other)
  Sender: FDA-Public Use
  Company Number: US-NOVOPROD-1233375

PATIENT
  Sex: Female

DRUGS (2)
  1. RIVFLOZA [Suspect]
     Active Substance: NEDOSIRAN SODIUM
     Indication: Product used for unknown indication
     Dosage: UNK
     Route: 058
  2. ESBRIET [Concomitant]
     Active Substance: PIRFENIDONE
     Indication: Product used for unknown indication
     Dosage: UNK

REACTIONS (1)
  - Diabetes mellitus [Unknown]
